FAERS Safety Report 11917489 (Version 1)
Quarter: 2016Q1

REPORT INFORMATION
  Report Type: Spontaneous
  Country: US (occurrence: US)
  Receive Date: 20160114
  Receipt Date: 20160114
  Transmission Date: 20160526
  Serious: No
  Sender: FDA-Public Use
  Company Number: US-MEDA-2015030090

PATIENT
  Sex: Male

DRUGS (1)
  1. MUSE [Suspect]
     Active Substance: ALPROSTADIL
     Route: 066

REACTIONS (2)
  - Wrong technique in product usage process [Recovered/Resolved]
  - Drug ineffective [Unknown]
